FAERS Safety Report 21332922 (Version 1)
Quarter: 2022Q3

REPORT INFORMATION
  Report Type: Spontaneous
  Country: US (occurrence: US)
  Receive Date: 20220914
  Receipt Date: 20220914
  Transmission Date: 20221026
  Serious: No
  Sender: FDA-Public Use
  Company Number: US-BAYER-2022A125192

PATIENT
  Age: 28 Year
  Sex: Female

DRUGS (1)
  1. MIRALAX [Suspect]
     Active Substance: POLYETHYLENE GLYCOL 3350
     Dosage: UNK UNK, QOD
     Route: 048
     Dates: start: 201903

REACTIONS (1)
  - Product monitoring error [Not Recovered/Not Resolved]

NARRATIVE: CASE EVENT DATE: 20190301
